FAERS Safety Report 23966778 (Version 3)
Quarter: 2024Q3

REPORT INFORMATION
  Report Type: Spontaneous
  Country: ES (occurrence: ES)
  Receive Date: 20240612
  Receipt Date: 20240712
  Transmission Date: 20241016
  Serious: Yes (Other)
  Sender: ALCON
  Company Number: ES-ALCON LABORATORIES-ALC2024ES002845

PATIENT

DRUGS (4)
  1. TROPICAMIDE [Suspect]
     Active Substance: TROPICAMIDE
     Indication: Libido disorder
     Dosage: DAILY DURING THE PREVIOUS 3-4 MONTHS, LATER CONTINUED INTRAVENOUS TROPICAMIDE USE 2-3 TIMES A WEEK
     Route: 042
  2. MIDOMAFETAMINE [Concomitant]
     Active Substance: MIDOMAFETAMINE
     Indication: Libido disorder
     Dosage: UNK
     Route: 065
  3. OXYBATE [Concomitant]
     Active Substance: OXYBATE
     Indication: Libido disorder
     Dosage: UNK
     Route: 065
  4. METHAMPHETAMINE [Concomitant]
     Active Substance: METHAMPHETAMINE
     Indication: Libido disorder
     Dosage: UNK
     Route: 065

REACTIONS (3)
  - Substance-induced psychotic disorder [Recovered/Resolved]
  - Drug abuse [Unknown]
  - Intentional product use issue [Unknown]
